FAERS Safety Report 8429504-1 (Version None)
Quarter: 2012Q2

REPORT INFORMATION
  Report Type: 
  Country: None (occurrence: None)
  Receive Date: 20120604
  Receipt Date: 20120523
  Transmission Date: 20120825
  Serious: Yes (Hospitalization)
  Sender: FDA-Public Use
  Company Number: 2012050144

PATIENT
  Age: 52 Year
  Sex: Male

DRUGS (3)
  1. OXYMETAZOLINE HYDROCHLORIDE SOLUTION/DROPS [Suspect]
     Indication: APLASTIC ANAEMIA
     Dosage: (100 MG, DAILY)
  2. ASPIRIN [Concomitant]
  3. CLOPIDOGREL [Concomitant]

REACTIONS (3)
  - THROMBOSIS IN DEVICE [None]
  - DENTAL CARIES [None]
  - PUNCTURE SITE HAEMORRHAGE [None]
